FAERS Safety Report 6348589-X (Version None)
Quarter: 2009Q3

REPORT INFORMATION
  Report Type: 
  Country: None (occurrence: None)
  Receive Date: 20090911
  Receipt Date: 20090902
  Transmission Date: 20100115
  Serious: Yes (Life-Threatening, Hospitalization, Other)
  Sender: FDA-Public Use
  Company Number: US-ROCHE-648816

PATIENT
  Sex: Male

DRUGS (3)
  1. KLONOPIN [Suspect]
     Indication: ANXIETY
     Route: 048
     Dates: start: 20090709, end: 20090709
  2. KLONOPIN [Suspect]
     Route: 048
     Dates: start: 20090710, end: 20090713
  3. KLONOPIN [Suspect]
     Route: 048
     Dates: start: 20090715

REACTIONS (4)
  - BIPOLAR I DISORDER [None]
  - INSOMNIA [None]
  - OVERDOSE [None]
  - SUICIDE ATTEMPT [None]
